FAERS Safety Report 22072822 (Version 1)
Quarter: 2023Q1

REPORT INFORMATION
  Report Type: Spontaneous
  Country: EG (occurrence: EG)
  Receive Date: 20230308
  Receipt Date: 20230308
  Transmission Date: 20230417
  Serious: Yes (Life-Threatening, Hospitalization)
  Sender: FDA-Public Use
  Company Number: EG-002147023-NVSC2023EG051477

PATIENT
  Age: 41 Year
  Sex: Female
  Weight: 85 kg

DRUGS (3)
  1. GILENYA [Suspect]
     Active Substance: FINGOLIMOD HYDROCHLORIDE
     Indication: Multiple sclerosis
     Dosage: 0.5 MG, QD
     Route: 048
     Dates: start: 2017
  2. GILENYA [Suspect]
     Active Substance: FINGOLIMOD HYDROCHLORIDE
     Dosage: 0.5 MG, QD (ALMOST 4.5 YEARS)
     Route: 048
  3. TEGRETOL [Suspect]
     Active Substance: CARBAMAZEPINE
     Indication: Product used for unknown indication
     Dosage: 200 MG
     Route: 065
     Dates: start: 2008, end: 2011

REACTIONS (9)
  - Seizure [Recovered/Resolved]
  - Multiple sclerosis [Unknown]
  - Vomiting [Unknown]
  - Agitation [Unknown]
  - Toothache [Unknown]
  - Loss of consciousness [Unknown]
  - Epilepsy [Not Recovered/Not Resolved]
  - Disturbance in attention [Unknown]
  - Cerebral dysrhythmia [Unknown]

NARRATIVE: CASE EVENT DATE: 20080101
